FAERS Safety Report 5278386-8 (Version None)
Quarter: 2007Q1

REPORT INFORMATION
  Report Type: 
  Country: None (occurrence: None)
  Receive Date: 20070322
  Receipt Date: 20070306
  Transmission Date: 20070707
  Serious: Yes (Death)
  Sender: FDA-Public Use
  Company Number: 11049

PATIENT
  Age: 77 Year
  Sex: Male

DRUGS (22)
  1. DEXAMETHASONE [Suspect]
     Dosage: 2 MG UNK UNK
  2. DILTIAZEM [Suspect]
     Dosage: 60 MG BID
  3. FRUSEMIDE [Suspect]
     Dosage: 80 MG DAILY
  4. METOCLOPRAMIDE [Suspect]
     Dosage: 10 MG DAILY UNK
  5. SPIRIVA [Suspect]
     Dosage: 18 MICROGRAM FREQ UNK IH
     Route: 055
     Dates: start: 20030617
  6. SALBUTAMOL [Suspect]
     Dates: start: 20030617, end: 20040513
  7. ATORVASTATIN CALCIUM [Suspect]
     Dosage: 10 MG
  8. BECLOMETHASONE DIPROPIONATE [Suspect]
     Dosage: 50 MICROGRAM BID IH
     Route: 055
  9. DOTHIEPIN HYDROCHLORIDE [Suspect]
     Dosage: 75 MG DAILY UNK
  10. GAVISCON [Suspect]
     Dosage: 10 MG DAILY
  11. LACTULOSE [Suspect]
     Dosage: 3.35 G FREQ
  12. LANSOPRAZOLE [Suspect]
     Dosage: 30 MG DAILY UNK
  13. NITROLINGUAL [Suspect]
     Dosage: 400 MG FREQ
  14. NOZINAN [Suspect]
     Dosage: 25 MG QID
  15. OXYCODONE HCL [Suspect]
     Dosage: 20 MG BID
  16. OXYGEN [Suspect]
  17. SPIRONOLACTONE [Suspect]
     Dosage: 50 MG
  18. SYMBICORT [Suspect]
     Dosage: 200 MICROGRAM BID IH
     Route: 055
  19. TEMAZEPAM [Suspect]
     Dosage: 10 MG NOCTE
  20. ASPIRIN [Suspect]
     Dosage: 75 MG
  21. SALBUTAMOL [Suspect]
     Dosage: 100 MICROGRAM PRN IH
     Route: 055
  22. FRUMIL [Suspect]

REACTIONS (1)
  - MESOTHELIOMA [None]
